FAERS Safety Report 6629578-4 (Version None)
Quarter: 2010Q1

REPORT INFORMATION
  Report Type: 
  Country: None (occurrence: None)
  Receive Date: 20100310
  Receipt Date: 20100310
  Transmission Date: 20100710
  Serious: No
  Sender: FDA-Public Use
  Company Number: None

PATIENT
  Sex: Female

DRUGS (3)
  1. CELLCEPT [Suspect]
     Indication: SYSTEMIC LUPUS ERYTHEMATOSUS
     Dosage: 500 MG AM 1000 MG PM
     Dates: start: 20091001
  2. PLAQUENIL [Concomitant]
  3. VITAMIN D [Concomitant]

REACTIONS (4)
  - FATIGUE [None]
  - PAIN [None]
  - PRODUCT SUBSTITUTION ISSUE [None]
  - WHITE BLOOD CELL COUNT DECREASED [None]
